FAERS Safety Report 25833653 (Version 1)
Quarter: 2025Q3

REPORT INFORMATION
  Report Type: Spontaneous
  Country: CA (occurrence: CA)
  Receive Date: 20250922
  Receipt Date: 20250922
  Transmission Date: 20251021
  Serious: Yes (Other)
  Sender: JOHNSON AND JOHNSON
  Company Number: CA-JNJFOC-20250927482

PATIENT
  Sex: Female

DRUGS (1)
  1. TOPAMAX [Suspect]
     Active Substance: TOPIRAMATE
     Indication: Arachnoiditis
     Route: 048

REACTIONS (5)
  - Spinal fracture [Unknown]
  - Osteoporosis [Unknown]
  - Memory impairment [Unknown]
  - Drug ineffective for unapproved indication [Unknown]
  - Off label use [Unknown]
